FAERS Safety Report 7486045-6 (Version None)
Quarter: 2011Q2

REPORT INFORMATION
  Report Type: 
  Country: None (occurrence: None)
  Receive Date: 20110517
  Receipt Date: 20110511
  Transmission Date: 20111010
  Serious: Yes (Hospitalization)
  Sender: FDA-Public Use
  Company Number: IT-PFIZER INC-2011101653

PATIENT
  Age: 80 Year
  Sex: Male

DRUGS (1)
  1. ZITHROMAX [Suspect]
     Indication: ACUTE TONSILLITIS
     Dosage: 500 MG DAILY
     Route: 048
     Dates: start: 20110507, end: 20110508

REACTIONS (2)
  - CONFUSIONAL STATE [None]
  - BALANCE DISORDER [None]
